FAERS Safety Report 10360053 (Version 6)
Quarter: 2014Q4

REPORT INFORMATION
  Report Type: Spontaneous
  Country: CH (occurrence: None)
  Receive Date: 20140730
  Receipt Date: 20141212
  Transmission Date: 20150528
  Serious: Yes (Hospitalization)
  Sender: FDA-Public Use
  Company Number: 20140429

PATIENT
  Age: 36 Year
  Sex: Male
  Weight: 96 kg

DRUGS (1)
  1. FERINJECT [Suspect]
     Active Substance: FERRIC CARBOXYMALTOSE
     Indication: ANAEMIA
     Route: 041
     Dates: start: 2013, end: 201311

REACTIONS (22)
  - Chest pain [None]
  - Cardiac disorder [None]
  - Back pain [None]
  - Restlessness [None]
  - Condition aggravated [None]
  - Flank pain [None]
  - Micturition urgency [None]
  - Pain in extremity [None]
  - Chest discomfort [None]
  - Paraesthesia [None]
  - Headache [None]
  - Discomfort [None]
  - Memory impairment [None]
  - Neck pain [None]
  - Toothache [None]
  - Pain in jaw [None]
  - Panic attack [None]
  - Flushing [None]
  - Hypertensive crisis [None]
  - Pain [None]
  - Gastrointestinal disorder [None]
  - Heart rate increased [None]

NARRATIVE: CASE EVENT DATE: 201310
